FAERS Safety Report 4429935-0 (Version None)
Quarter: 2004Q3

REPORT INFORMATION
  Report Type: 
  Country: None (occurrence: None)
  Receive Date: 20040817
  Receipt Date: 20040817
  Transmission Date: 20050211
  Serious: Yes (Hospitalization)
  Sender: FDA-Public Use
  Company Number: None

PATIENT
  Age: 13 Year
  Sex: Female
  Weight: 64 kg

DRUGS (1)
  1. IBUPROFEN [Suspect]
     Dates: start: 20040804

REACTIONS (3)
  - DRUG TOXICITY [None]
  - METABOLIC ACIDOSIS [None]
  - RENAL FAILURE [None]
